FAERS Safety Report 10520024 (Version 2)
Quarter: 2014Q4

REPORT INFORMATION
  Report Type: Report from Study
  Country: BR (occurrence: BR)
  Receive Date: 20141015
  Receipt Date: 20141015
  Transmission Date: 20150528
  Serious: Yes (Death, Hospitalization)
  Sender: FDA-Public Use
  Company Number: BR-BAYER-2013-126959

PATIENT
  Age: 71 Year
  Sex: Male
  Weight: 53.97 kg

DRUGS (7)
  1. TENORETIC [Concomitant]
     Active Substance: ATENOLOL\CHLORTHALIDONE
     Indication: HYPERTENSION
     Dosage: 1 DF, UNK
     Route: 048
  2. NEXAVAR [Suspect]
     Active Substance: SORAFENIB
     Indication: HEPATIC CANCER
     Dosage: 1 DF, QD (1 TABLET A DAY)
     Route: 048
     Dates: start: 20131012, end: 20131016
  3. NEXAVAR [Suspect]
     Active Substance: SORAFENIB
     Indication: HEPATIC CANCER
     Dosage: 1 DF, QOD
     Dates: start: 201402
  4. NEXAVAR [Suspect]
     Active Substance: SORAFENIB
     Indication: HEPATIC CANCER
     Dosage: 2 DF, QD (2 TABLETS A DAY)
     Route: 048
     Dates: start: 20131004, end: 20131011
  5. VITERGAN MASTER [Concomitant]
     Indication: VITAMIN SUPPLEMENTATION
     Dosage: 1 DF, QD
     Route: 048
     Dates: start: 201309
  6. PANTOPRAZOLE [Concomitant]
     Active Substance: PANTOPRAZOLE SODIUM
     Dosage: 1 DF, QD
     Route: 048
     Dates: start: 201309
  7. VERTIX [Concomitant]
     Indication: DIZZINESS
     Dosage: 1 DF, HS
     Route: 048
     Dates: start: 201309

REACTIONS (4)
  - Asthenia [Not Recovered/Not Resolved]
  - Rash macular [Not Recovered/Not Resolved]
  - Inflammation [Recovered/Resolved]
  - Hepatic cancer [Fatal]

NARRATIVE: CASE EVENT DATE: 201310
